FAERS Safety Report 9463300 (Version 2)
Quarter: 2013Q4

REPORT INFORMATION
  Report Type: Report from Study
  Country: JP (occurrence: JP)
  Receive Date: 20130819
  Receipt Date: 20131219
  Transmission Date: 20140711
  Serious: Yes (Hospitalization, Other)
  Sender: FDA-Public Use
  Company Number: JP-ROCHE-1261085

PATIENT
  Age: 74 Year
  Sex: Female

DRUGS (2)
  1. METHOXY POLYETHYLENE GLYCOL-EPOETIN BETA [Suspect]
     Indication: NEPHROGENIC ANAEMIA
     Route: 058
     Dates: start: 20121129
  2. FESIN (JAPAN) [Concomitant]
     Route: 042
     Dates: start: 20130221, end: 20130226

REACTIONS (4)
  - Gastrointestinal haemorrhage [Recovering/Resolving]
  - Gastric ulcer [Unknown]
  - Duodenal ulcer [Unknown]
  - Hypertension [Unknown]
